FAERS Safety Report 6574387-8 (Version None)
Quarter: 2010Q1

REPORT INFORMATION
  Report Type: 
  Country: None (occurrence: None)
  Receive Date: 20100208
  Receipt Date: 20100201
  Transmission Date: 20100710
  Serious: Yes (Death)
  Sender: FDA-Public Use
  Company Number: US-GILEAD-2010-0026494

PATIENT
  Sex: Female

DRUGS (11)
  1. LETAIRIS [Suspect]
     Indication: PULMONARY ARTERIAL HYPERTENSION
     Route: 048
     Dates: start: 20090826, end: 20091221
  2. COUMADIN [Concomitant]
  3. ARICEPT [Concomitant]
  4. PYLERA [Concomitant]
  5. MULTI-VITAMINS [Concomitant]
  6. NIFEDIPINE [Concomitant]
  7. PREDNISONE [Concomitant]
  8. SINGULAIR [Concomitant]
  9. BONIVA [Concomitant]
  10. ZOCOR [Concomitant]
  11. ZETIA [Concomitant]

REACTIONS (2)
  - ANAEMIA [None]
  - CARDIO-RESPIRATORY ARREST [None]
